FAERS Safety Report 4601958-8 (Version None)
Quarter: 2005Q1

REPORT INFORMATION
  Report Type: 
  Country: None (occurrence: None)
  Receive Date: 20050215
  Receipt Date: 20041127
  Transmission Date: 20050727
  Serious: Yes (Other)
  Sender: FDA-Public Use
  Company Number: 387834

PATIENT
  Age: 45 Year
  Sex: Female
  Weight: 57.6 kg

DRUGS (4)
  1. PEGASYS [Suspect]
     Indication: HEPATITIS C VIRUS
     Dosage: 180 MCG SUBCUTANEOUS
     Route: 058
     Dates: start: 20040820
  2. COPEGUS [Suspect]
     Indication: HEPATITIS C VIRUS
     Dosage: ORAL
     Route: 048
     Dates: start: 20040820
  3. ATENOLOL [Concomitant]
  4. XANAX [Concomitant]

REACTIONS (9)
  - ANAEMIA [None]
  - BRONCHOPNEUMONIA [None]
  - CHEST PAIN [None]
  - HEADACHE [None]
  - MYALGIA [None]
  - NAUSEA [None]
  - PRODUCTIVE COUGH [None]
  - VOMITING [None]
  - WEIGHT DECREASED [None]
